FAERS Safety Report 9422220 (Version 1)
Quarter: 2013Q3

REPORT INFORMATION
  Report Type: Spontaneous
  Country: NL (occurrence: NL)
  Receive Date: 20130726
  Receipt Date: 20130726
  Transmission Date: 20140515
  Serious: Yes (Hospitalization)
  Sender: FDA-Public Use
  Company Number: NL-PFIZER INC-2013216387

PATIENT
  Age: 35 Year
  Sex: Male
  Weight: 120 kg

DRUGS (1)
  1. CHAMPIX [Suspect]
     Indication: SMOKING CESSATION THERAPY
     Dosage: 5 MG, 2X/DAY
     Dates: start: 20130628, end: 20130701

REACTIONS (1)
  - Cerebral infarction [Recovered/Resolved with Sequelae]
